FAERS Safety Report 7593161-7 (Version None)
Quarter: 2011Q3

REPORT INFORMATION
  Report Type: 
  Country: None (occurrence: None)
  Receive Date: 20110706
  Receipt Date: 20110630
  Transmission Date: 20111222
  Serious: Yes (Hospitalization)
  Sender: FDA-Public Use
  Company Number: JP-B.I. PHARMACEUTICALS,INC./RIDGEFIELD-2011-BP-16627NB

PATIENT
  Age: 87 Year
  Sex: Female

DRUGS (4)
  1. CHIYOBAN [Concomitant]
     Dosage: 200 MG
     Route: 048
  2. LAMISIL [Concomitant]
     Dosage: 125 MG
     Route: 048
  3. PRADAXA [Suspect]
     Dosage: 220 MG
     Route: 048
     Dates: start: 20110425, end: 20110620
  4. CANDESARTAN CILEXETIL AND HYDROCHLOROTHIAZIDE [Concomitant]
     Route: 048

REACTIONS (4)
  - MELAENA [None]
  - GASTRITIS [None]
  - DIZZINESS [None]
  - PETECHIAE [None]
